FAERS Safety Report 10866127 (Version 2)
Quarter: 2015Q1

REPORT INFORMATION
  Report Type: Spontaneous
  Country: SA (occurrence: None)
  Receive Date: 20150219
  Receipt Date: 20150225
  Transmission Date: 20150721
  Serious: Yes (Hospitalization)
  Sender: FDA-Public Use
  Company Number: UCM201502-000099

PATIENT
  Age: 24 Month
  Sex: Male

DRUGS (1)
  1. CLONIDINE HCL [Suspect]
     Active Substance: CLONIDINE HYDROCHLORIDE

REACTIONS (12)
  - Lethargy [None]
  - Malaise [None]
  - Respiratory depression [None]
  - Hypotonia [None]
  - Hypotension [None]
  - Miosis [None]
  - Somnolence [None]
  - Pallor [None]
  - Depressed level of consciousness [None]
  - Atrioventricular block first degree [None]
  - Toxicity to various agents [None]
  - Overdose [None]
